FAERS Safety Report 5223872-X (Version None)
Quarter: 2007Q1

REPORT INFORMATION
  Report Type: 
  Country: None (occurrence: None)
  Receive Date: 20070130
  Receipt Date: 20070125
  Transmission Date: 20070707
  Serious: Yes (Hospitalization)
  Sender: FDA-Public Use
  Company Number: US-BRISTOL-MYERS SQUIBB COMPANY-13656673

PATIENT
  Age: 68 Year
  Sex: Male

DRUGS (3)
  1. ERBITUX [Suspect]
     Indication: COLORECTAL CANCER
     Dosage: INFUSION OF CETUXIMAB 700MG STARTED ON 23-AUG-2006 AND MOST RECENT INFUSION OF 400MG ON 17-JAN-2007
     Route: 042
     Dates: start: 20070117
  2. XELODA [Concomitant]
  3. DEXAMETHASONE [Concomitant]
     Indication: PREMEDICATION
     Route: 042

REACTIONS (4)
  - ARTHRALGIA [None]
  - ARTHRITIS [None]
  - BLOOD CREATINE INCREASED [None]
  - JOINT SWELLING [None]
